FAERS Safety Report 11315392 (Version 1)
Quarter: 2015Q3

REPORT INFORMATION
  Report Type: Report from Study
  Country: US (occurrence: US)
  Receive Date: 20150728
  Receipt Date: 20150728
  Transmission Date: 20151125
  Serious: No
  Sender: FDA-Public Use
  Company Number: US-AMGEN-USASL2015074361

PATIENT
  Age: 65 Year
  Sex: Female

DRUGS (1)
  1. ENBREL [Suspect]
     Active Substance: ETANERCEPT
     Indication: RHEUMATOID ARTHRITIS
     Dosage: 50 MG, QWK
     Route: 065
     Dates: end: 20150523

REACTIONS (4)
  - Localised infection [Recovered/Resolved]
  - Oropharyngeal pain [Recovered/Resolved]
  - Respiratory tract congestion [Recovered/Resolved]
  - Rheumatoid nodule [Recovered/Resolved]
